FAERS Safety Report 14580099 (Version 1)
Quarter: 2018Q1

REPORT INFORMATION
  Report Type: Spontaneous
  Country: US (occurrence: US)
  Receive Date: 20180228
  Receipt Date: 20180228
  Transmission Date: 20180509
  Serious: Yes (Other)
  Sender: FDA-Public Use
  Company Number: US-ROCHE-1974422

PATIENT
  Age: 58 Year
  Sex: Female

DRUGS (3)
  1. CELLCEPT [Suspect]
     Active Substance: MYCOPHENOLATE MOFETIL\MYCOPHENOLATE MOFETIL HYDROCHLORIDE
     Indication: RENAL TRANSPLANT
     Dosage: ONGOING
     Route: 048
     Dates: start: 20170711
  2. PROGRAF [Suspect]
     Active Substance: TACROLIMUS\TACROLIMUS ANHYDROUS
     Indication: RENAL TRANSPLANT
     Route: 048
     Dates: start: 20170710
  3. PROGRAF [Suspect]
     Active Substance: TACROLIMUS\TACROLIMUS ANHYDROUS
     Dosage: 5 MG IN AM, 4 MG IN PM.
     Route: 048
     Dates: start: 201506

REACTIONS (7)
  - Vomiting [Unknown]
  - Amnesia [Unknown]
  - Pharyngitis [Unknown]
  - Diverticulitis [Unknown]
  - Pyrexia [Unknown]
  - Nausea [Unknown]
  - Throat tightness [Unknown]

NARRATIVE: CASE EVENT DATE: 20170701
